FAERS Safety Report 17776722 (Version 1)
Quarter: 2020Q2

REPORT INFORMATION
  Report Type: Spontaneous
  Country: US (occurrence: US)
  Receive Date: 20200513
  Receipt Date: 20200513
  Transmission Date: 20200714
  Serious: Yes (Hospitalization)
  Sender: FDA-Public Use
  Company Number: None

PATIENT
  Sex: Male

DRUGS (3)
  1. DILANTIN 300MG [Concomitant]
  2. KEPPRA [Suspect]
     Active Substance: LEVETIRACETAM
  3. VIMPAT 150MG [Concomitant]

REACTIONS (1)
  - Hospitalisation [None]
